FAERS Safety Report 4411683-4 (Version None)
Quarter: 2004Q3

REPORT INFORMATION
  Report Type: 
  Country: None (occurrence: None)
  Receive Date: 20040729
  Receipt Date: 20040729
  Transmission Date: 20050211
  Serious: Yes (Other)
  Sender: FDA-Public Use
  Company Number: None

PATIENT
  Sex: Female
  Weight: 25 kg

DRUGS (1)
  1. RHINOCORT [Suspect]
     Indication: RESPIRATORY DISORDER
     Dosage: 1 PUFF DAY NASAL
     Route: 045
     Dates: start: 20040622, end: 20040712

REACTIONS (1)
  - EPISTAXIS [None]
